FAERS Safety Report 8499234-9 (Version None)
Quarter: 2012Q3

REPORT INFORMATION
  Report Type: 
  Country: None (occurrence: None)
  Receive Date: 20120710
  Receipt Date: 20120628
  Transmission Date: 20120928
  Serious: Yes (Hospitalization, Other)
  Sender: FDA-Public Use
  Company Number: PHHY2012CH057533

PATIENT
  Age: 75 Year
  Sex: Male

DRUGS (11)
  1. EXFORGE HCT [Concomitant]
  2. VOLTAREN [Suspect]
     Dosage: 50 MG
     Route: 048
  3. NSAID'S [Concomitant]
  4. MAGNESIUM DIASPORAL [Concomitant]
  5. PLAVIX [Suspect]
     Dosage: 75 MG DAILY
     Route: 048
  6. CRESTOR [Concomitant]
  7. ASPIRIN [Suspect]
     Dosage: 100 MG, DAILY
     Route: 048
     Dates: start: 20120421
  8. ARCOXIA [Suspect]
     Dosage: UNK
     Route: 048
     Dates: start: 20120421
  9. PROSCAR [Concomitant]
  10. COUMADIN [Suspect]
     Dosage: UNK
     Route: 048
     Dates: start: 20120421
  11. RED BLOOD CELLS, CONCENTRATED [Concomitant]
     Dosage: 4 BAGS

REACTIONS (16)
  - DRY MOUTH [None]
  - MELAENA [None]
  - RENAL FAILURE ACUTE [None]
  - HYPOTENSION [None]
  - ATRIAL FLUTTER [None]
  - DUODENAL ULCER [None]
  - GASTROINTESTINAL HAEMORRHAGE [None]
  - MALAISE [None]
  - HYPERVOLAEMIA [None]
  - FAECES DISCOLOURED [None]
  - DIARRHOEA [None]
  - ANAEMIA [None]
  - ATRIAL FIBRILLATION [None]
  - SYNCOPE [None]
  - ABDOMINAL PAIN UPPER [None]
  - GENERAL PHYSICAL HEALTH DETERIORATION [None]
